FAERS Safety Report 23346553 (Version 1)
Quarter: 2023Q4

REPORT INFORMATION
  Report Type: Spontaneous
  Country: US (occurrence: None)
  Receive Date: 20231227
  Receipt Date: 20231227
  Transmission Date: 20240110
  Serious: Yes (Death, Hospitalization)
  Sender: FDA-Public Use
  Company Number: None

PATIENT
  Age: 74 Year
  Sex: Male

DRUGS (1)
  1. PIRFENIDONE [Suspect]
     Active Substance: PIRFENIDONE
     Indication: Idiopathic pulmonary fibrosis
     Dosage: 801 MG TID ORAL
     Route: 048
     Dates: start: 20230706, end: 20231209

REACTIONS (2)
  - Oxygen consumption increased [None]
  - Dyspnoea [None]

NARRATIVE: CASE EVENT DATE: 20231227
